FAERS Safety Report 5785995-6 (Version None)
Quarter: 2008Q2

REPORT INFORMATION
  Report Type: 
  Country: None (occurrence: None)
  Receive Date: 20080624
  Receipt Date: 20070601
  Transmission Date: 20081010
  Serious: No
  Sender: FDA-Public Use
  Company Number: US-ASTRAZENECA-2007UW13359

PATIENT
  Sex: Female

DRUGS (2)
  1. PULMICORT [Suspect]
     Dosage: 200 MCG DOSE UNIT
     Route: 055
  2. FORADIL [Concomitant]

REACTIONS (2)
  - EYE PAIN [None]
  - NAUSEA [None]
